FAERS Safety Report 12487766 (Version 2)
Quarter: 2016Q3

REPORT INFORMATION
  Report Type: Spontaneous
  Country: US (occurrence: US)
  Receive Date: 20160622
  Receipt Date: 20160712
  Transmission Date: 20161109
  Serious: Yes (Other)
  Sender: FDA-Public Use
  Company Number: US-AUROBINDO-AUR-APL-2016-08164

PATIENT
  Age: 24 Year
  Sex: Male

DRUGS (1)
  1. LOPERAMIDE [Suspect]
     Active Substance: LOPERAMIDE
     Indication: DETOXIFICATION
     Dosage: 32 MG, UNK
     Route: 065

REACTIONS (3)
  - Drug abuse [Unknown]
  - Brugada syndrome [Unknown]
  - Intentional overdose [Unknown]
